FAERS Safety Report 13622259 (Version 1)
Quarter: 2017Q2

REPORT INFORMATION
  Report Type: Spontaneous
  Country: US (occurrence: US)
  Receive Date: 20170607
  Receipt Date: 20170607
  Transmission Date: 20170830
  Serious: Yes (Other)
  Sender: FDA-Public Use
  Company Number: US-ROCHE-1901498

PATIENT
  Sex: Female
  Weight: 65.83 kg

DRUGS (1)
  1. CELLCEPT [Suspect]
     Active Substance: MYCOPHENOLATE MOFETIL\MYCOPHENOLATE MOFETIL HYDROCHLORIDE
     Indication: SCLERODERMA
     Dosage: 3 TABLETS IN AM AND 3 TABLETS IN AFTERNOON
     Route: 048

REACTIONS (4)
  - Body height decreased [Unknown]
  - Erythema [Recovered/Resolved]
  - Pruritus [Unknown]
  - Cardiac failure congestive [Unknown]
